FAERS Safety Report 5413444-6 (Version None)
Quarter: 2007Q3

REPORT INFORMATION
  Report Type: 
  Country: None (occurrence: None)
  Receive Date: 20070810
  Receipt Date: 20070810
  Transmission Date: 20080115
  Serious: Yes (Hospitalization)
  Sender: FDA-Public Use
  Company Number: None

PATIENT
  Age: 83 Year
  Sex: Male

DRUGS (9)
  1. PLAVIX [Suspect]
     Indication: CORONARY ARTERY DISEASE
     Dosage: 75 MG DAILY PO
     Route: 048
  2. VALSARTAN [Concomitant]
  3. ZETIA [Concomitant]
  4. PLAVIX [Concomitant]
  5. ASPIRIN [Concomitant]
  6. COREG [Concomitant]
  7. AMBIEN [Concomitant]
  8. ANCEF [Concomitant]
  9. SODIUM CHLORIDE [Concomitant]

REACTIONS (2)
  - INCISION SITE HAEMATOMA [None]
  - WOUND HAEMORRHAGE [None]
